FAERS Safety Report 9406898 (Version 7)
Quarter: 2014Q1

REPORT INFORMATION
  Report Type: Spontaneous
  Country: US (occurrence: US)
  Receive Date: 20130718
  Receipt Date: 20140321
  Transmission Date: 20141002
  Serious: Yes (Other)
  Sender: FDA-Public Use
  Company Number: PHEH2013US014131

PATIENT
  Sex: Male

DRUGS (2)
  1. EXFORGE [Suspect]
     Dosage: 1 DF, (320/10 MG) DAILY
     Dates: start: 20130528
  2. EXFORGE [Suspect]
     Dosage: 1 DF, (320/10 MG) DAILY
     Dates: start: 20130625

REACTIONS (8)
  - Eye haemorrhage [Unknown]
  - Feeling abnormal [Unknown]
  - Flatulence [Unknown]
  - Agitation [Unknown]
  - Muscle spasms [Unknown]
  - Insomnia [Unknown]
  - Hypertension [Unknown]
  - Drug ineffective [Unknown]
